FAERS Safety Report 8762754 (Version 2)
Quarter: 2012Q4

REPORT INFORMATION
  Report Type: 
  Country: JP (occurrence: JP)
  Receive Date: 20120831
  Receipt Date: 20120926
  Transmission Date: 20130627
  Serious: Yes (Hospitalization, Other)
  Sender: FDA-Public Use
  Company Number: JP-PFIZER INC-2012209258

PATIENT
  Age: 73 Year
  Sex: Female
  Weight: 35.1 kg

DRUGS (3)
  1. LYRICA [Suspect]
     Indication: POST HERPETIC NEURALGIA
     Dosage: 75 mg, 2x/day
     Route: 048
     Dates: start: 20120824, end: 20120827
  2. CELECOX [Concomitant]
     Indication: POST HERPETIC NEURALGIA
     Dosage: 100 mg, 2x/day
     Route: 048
     Dates: start: 20120814
  3. VALTREX [Concomitant]
     Indication: POST HERPETIC NEURALGIA
     Dosage: 500 mg, 2x/day
     Route: 048
     Dates: start: 20120731, end: 20120806

REACTIONS (10)
  - Overdose [Unknown]
  - Altered state of consciousness [Recovered/Resolved]
  - Gait disturbance [Recovered/Resolved]
  - Dizziness [Unknown]
  - Fall [Unknown]
  - Creatinine renal clearance decreased [Unknown]
  - Nausea [Unknown]
  - Vomiting [Unknown]
  - Blood creatinine increased [Unknown]
  - Blood urea increased [Unknown]
